FAERS Safety Report 15279442 (Version 1)
Quarter: 2018Q3

REPORT INFORMATION
  Report Type: Spontaneous
  Country: CN (occurrence: CN)
  Receive Date: 20180815
  Receipt Date: 20180815
  Transmission Date: 20181010
  Serious: Yes (Death, Other)
  Sender: FDA-Public Use
  Company Number: CN-FERRINGPH-2018FE04290

PATIENT

DRUGS (2)
  1. OXYTOCIN. [Suspect]
     Active Substance: OXYTOCIN
     Dosage: 5 UNIT
     Route: 064
     Dates: start: 20180630, end: 20180630
  2. PROPESS [Suspect]
     Active Substance: DINOPROSTONE
     Indication: INDUCTION OF CERVIX RIPENING
     Dosage: 10 MG, ONCE/SINGLE
     Route: 064
     Dates: start: 20180629, end: 20180629

REACTIONS (2)
  - Foetal death [Fatal]
  - Foetal heart rate abnormal [Unknown]

NARRATIVE: CASE EVENT DATE: 20180630
